FAERS Safety Report 11694738 (Version 1)
Quarter: 2015Q4

REPORT INFORMATION
  Report Type: Spontaneous
  Country: US (occurrence: US)
  Receive Date: 20151103
  Receipt Date: 20151103
  Transmission Date: 20160304
  Serious: Yes (Other)
  Sender: FDA-Public Use
  Company Number: US-PFIZER INC-2015366558

PATIENT
  Age: 50 Year
  Sex: Female
  Weight: 72 kg

DRUGS (15)
  1. SEROQUEL [Interacting]
     Active Substance: QUETIAPINE FUMARATE
     Dosage: UNK
     Dates: start: 2010, end: 2010
  2. PRISTIQ EXTENDED RELEASE [Suspect]
     Active Substance: DESVENLAFAXINE SUCCINATE
     Dosage: 50 MG, 1X/DAY (ONE PILL)
  3. PRISTIQ EXTENDED RELEASE [Suspect]
     Active Substance: DESVENLAFAXINE SUCCINATE
     Dosage: 25 MG, DAILY (HALF A PILL)
  4. PROPRANOLOL [Concomitant]
     Active Substance: PROPRANOLOL\PROPRANOLOL HYDROCHLORIDE
     Indication: CARDIAC DISORDER
     Dosage: 20 MG, 2X/DAY
     Dates: start: 2007
  5. TRIHEXYPHENIDYL [Concomitant]
     Active Substance: TRIHEXYPHENIDYL
     Indication: DYSKINESIA
     Dosage: 2 MG, 3X/DAY
     Dates: start: 2007
  6. DEPAKOTE [Interacting]
     Active Substance: DIVALPROEX SODIUM
     Dosage: UNK
     Dates: start: 200702, end: 2009
  7. SEROQUEL [Interacting]
     Active Substance: QUETIAPINE FUMARATE
     Dosage: UNK
     Dates: start: 200702, end: 2009
  8. TEGRETOL [Concomitant]
     Active Substance: CARBAMAZEPINE
     Indication: AFFECTIVE DISORDER
     Dosage: 400 MG, 2X/DAY (TAKE AT LEAST 3 YEARS )
     Dates: start: 2012
  9. SYNTHROID [Concomitant]
     Active Substance: LEVOTHYROXINE SODIUM
     Indication: HYPERTHYROIDISM
     Dosage: 1 DF, UNK (1 ON EMPTY STOMACH)
     Dates: start: 2007
  10. DEPAKOTE [Interacting]
     Active Substance: DIVALPROEX SODIUM
     Dosage: UNK
     Dates: start: 2010, end: 2010
  11. GEODON [Suspect]
     Active Substance: ZIPRASIDONE HYDROCHLORIDE\ZIPRASIDONE MESYLATE
     Indication: BIPOLAR DISORDER
     Dosage: 1 DF, 2X/DAY
     Dates: start: 2010
  12. XANAX [Concomitant]
     Active Substance: ALPRAZOLAM
     Indication: ANXIETY
     Dosage: 2 MG, UNK (1 IN 4 HR)
  13. TRIHEXYPHENIDYL [Concomitant]
     Active Substance: TRIHEXYPHENIDYL
     Indication: DYSTONIA
  14. PRISTIQ EXTENDED RELEASE [Suspect]
     Active Substance: DESVENLAFAXINE SUCCINATE
     Indication: DEPRESSION
     Dosage: 50 MG, 2X/DAY
     Dates: start: 2009
  15. LAMICTAL [Concomitant]
     Active Substance: LAMOTRIGINE
     Indication: AFFECTIVE DISORDER
     Dosage: 200 MG, 2X/DAY (TAKE AT LEAST 4 YEARS AT BEDTIME)
     Dates: start: 2011

REACTIONS (12)
  - Frustration [Unknown]
  - Head discomfort [Recovered/Resolved]
  - Gait disturbance [Unknown]
  - Suicide attempt [Recovered/Resolved]
  - Withdrawal syndrome [Recovered/Resolved]
  - Dyskinesia [Unknown]
  - Insomnia [Not Recovered/Not Resolved]
  - Drug interaction [Recovered/Resolved]
  - Condition aggravated [Unknown]
  - Intentional product misuse [Recovered/Resolved]
  - Dystonia [Unknown]
  - Drug dependence [Unknown]

NARRATIVE: CASE EVENT DATE: 2014
